FAERS Safety Report 22399307 (Version 1)
Quarter: 2023Q2

REPORT INFORMATION
  Report Type: Spontaneous
  Country: US (occurrence: US)
  Receive Date: 20230602
  Receipt Date: 20230602
  Transmission Date: 20230721
  Serious: Yes (Other)
  Sender: FDA-Public Use
  Company Number: US-SAGENT PHARMACEUTICALS-2023SAG000097

PATIENT
  Age: 40 Year
  Sex: Female

DRUGS (14)
  1. FLUOROURACIL [Suspect]
     Active Substance: FLUOROURACIL
     Indication: Pancreatic carcinoma metastatic
     Dosage: UNK
     Route: 042
     Dates: start: 20160120
  2. FLUOROURACIL [Suspect]
     Active Substance: FLUOROURACIL
     Dosage: UNK
     Route: 065
     Dates: start: 20170628
  3. FLUOROURACIL [Suspect]
     Active Substance: FLUOROURACIL
     Dosage: UNK
     Route: 065
     Dates: start: 20170822
  4. LEUCOVORIN CALCIUM [Suspect]
     Active Substance: LEUCOVORIN CALCIUM
     Indication: Pancreatic carcinoma metastatic
     Dosage: UNK
     Route: 065
     Dates: start: 20160120
  5. LEUCOVORIN CALCIUM [Suspect]
     Active Substance: LEUCOVORIN CALCIUM
     Dosage: UNK
     Route: 065
     Dates: start: 20170628
  6. LEUCOVORIN CALCIUM [Suspect]
     Active Substance: LEUCOVORIN CALCIUM
     Dosage: UNK
     Route: 065
     Dates: start: 20170822
  7. IRINOTECAN [Suspect]
     Active Substance: IRINOTECAN
     Indication: Pancreatic carcinoma metastatic
     Dosage: UNK
     Route: 065
     Dates: start: 20160120
  8. IRINOTECAN [Suspect]
     Active Substance: IRINOTECAN
     Dosage: UNK
     Route: 065
     Dates: start: 20170628
  9. IRINOTECAN [Suspect]
     Active Substance: IRINOTECAN
     Dosage: UNK
     Route: 065
     Dates: start: 20170822
  10. OXALIPLATIN [Suspect]
     Active Substance: OXALIPLATIN
     Indication: Pancreatic carcinoma metastatic
     Dosage: UNK
     Route: 065
     Dates: start: 20160120, end: 2016
  11. GEMCITABINE [Suspect]
     Active Substance: GEMCITABINE
     Indication: Pancreatic carcinoma metastatic
     Dosage: UNK
     Route: 065
     Dates: start: 20161221, end: 2017
  12. GEMCITABINE [Suspect]
     Active Substance: GEMCITABINE
     Dosage: UNK
     Route: 065
     Dates: start: 20170301, end: 2017
  13. PACLITAXEL [Suspect]
     Active Substance: PACLITAXEL
     Indication: Pancreatic carcinoma metastatic
     Dosage: UNK
     Route: 065
     Dates: start: 20161221, end: 2017
  14. CISPLATIN [Suspect]
     Active Substance: CISPLATIN
     Indication: Pancreatic carcinoma metastatic
     Dosage: UNK
     Dates: start: 20170301, end: 2017

REACTIONS (1)
  - Purtscher retinopathy [Unknown]

NARRATIVE: CASE EVENT DATE: 20170101
